FAERS Safety Report 24097347 (Version 1)
Quarter: 2024Q3

REPORT INFORMATION
  Report Type: Spontaneous
  Country: US (occurrence: US)
  Receive Date: 20240716
  Receipt Date: 20240716
  Transmission Date: 20241016
  Serious: No
  Sender: ACER THERAPEUTICS
  Company Number: US-ACER THERAPEUTICS INC.-2024-SPO-OLP-0002

PATIENT

DRUGS (1)
  1. OLPRUVA [Suspect]
     Active Substance: SODIUM PHENYLBUTYRATE
     Indication: Product used for unknown indication
     Dosage: UNK
     Route: 065
     Dates: start: 202403, end: 2024

REACTIONS (2)
  - Nausea [Unknown]
  - Dyspepsia [Unknown]
